FAERS Safety Report 11835988 (Version 10)
Quarter: 2019Q4

REPORT INFORMATION
  Report Type: Report from Study
  Country: US (occurrence: US)
  Receive Date: 20151215
  Receipt Date: 20191015
  Transmission Date: 20200122
  Serious: Yes (Hospitalization, Other)
  Sender: FDA-Public Use
  Company Number: PHHY2015US157729

PATIENT
  Age: 27 Year
  Sex: Female
  Weight: 68.9 kg

DRUGS (3)
  1. VENLAFAXINE [Concomitant]
     Active Substance: VENLAFAXINE HYDROCHLORIDE
     Indication: DEPRESSION
     Dosage: 75 MG, UNK
     Route: 065
     Dates: start: 20181201
  2. GILENYA [Suspect]
     Active Substance: FINGOLIMOD HYDROCHLORIDE
     Dosage: UNK
     Route: 065
     Dates: start: 20181113
  3. GILENYA [Suspect]
     Active Substance: FINGOLIMOD HYDROCHLORIDE
     Indication: MULTIPLE SCLEROSIS
     Dosage: UNK, QD
     Route: 048
     Dates: start: 20150803

REACTIONS (16)
  - Lymphocyte count decreased [Unknown]
  - Chorioretinopathy [Recovered/Resolved]
  - Alanine aminotransferase increased [Unknown]
  - Sinusitis [Unknown]
  - Influenza [Unknown]
  - White blood cell count decreased [Unknown]
  - Dizziness [Recovered/Resolved]
  - Hypoaesthesia [Recovered/Resolved]
  - Central nervous system lesion [Recovered/Resolved]
  - Aspartate aminotransferase increased [Unknown]
  - Hypotonia [Unknown]
  - Headache [Recovered/Resolved]
  - Back pain [Unknown]
  - Muscle spasms [Unknown]
  - Asthenia [Recovered/Resolved]
  - Non-cardiac chest pain [Unknown]

NARRATIVE: CASE EVENT DATE: 20150901
